FAERS Safety Report 9719061 (Version 1)
Quarter: 2013Q4

REPORT INFORMATION
  Report Type: Report from Study
  Country: US (occurrence: US)
  Receive Date: 20131127
  Receipt Date: 20131127
  Transmission Date: 20140711
  Serious: Yes (Other)
  Sender: FDA-Public Use
  Company Number: US-ABBVIE-13P-163-1172862-00

PATIENT
  Sex: Female

DRUGS (19)
  1. HUMIRA [Suspect]
     Indication: RHEUMATOID ARTHRITIS
  2. HYDROCODONE [Concomitant]
     Indication: PAIN
     Dosage: 7MG/500MG
  3. CARVEDILOL [Concomitant]
     Indication: PALPITATIONS
  4. LISINOPRIL/HCTZ [Concomitant]
     Indication: HYPERTENSION
     Dosage: 10MG/12.5MG
  5. POTASSIUM [Concomitant]
     Indication: BLOOD POTASSIUM DECREASED
     Dosage: 20MEQ DAILY
  6. TIZANDINE [Concomitant]
     Indication: MUSCLE SPASMS
     Dosage: 2MG TABLETS TAKES 1/2 TABLETS (1MG)
  7. NEURONTIN [Concomitant]
     Indication: NEUROPATHY PERIPHERAL
  8. NEXIUM [Concomitant]
     Indication: GASTROOESOPHAGEAL REFLUX DISEASE
  9. FOLIC ACID [Concomitant]
     Indication: PRODUCT USED FOR UNKNOWN INDICATION
     Dosage: AT BEDTIME
  10. PREDNISONE [Concomitant]
     Indication: RHEUMATOID ARTHRITIS
  11. ACYCLOVIR [Concomitant]
     Indication: HERPES SIMPLEX
  12. METHOTREXATE [Concomitant]
     Indication: RHEUMATOID ARTHRITIS
     Dosage: 25MG/ML TAKES 0.09ML EVERY FRIDAY
  13. MULTIVITAMIN [Concomitant]
     Indication: PRODUCT USED FOR UNKNOWN INDICATION
  14. VITAMIN A [Concomitant]
     Indication: PRODUCT USED FOR UNKNOWN INDICATION
  15. VITAMIN B-12 [Concomitant]
     Indication: PRODUCT USED FOR UNKNOWN INDICATION
  16. ZINC [Concomitant]
     Indication: PRODUCT USED FOR UNKNOWN INDICATION
  17. FISH OIL [Concomitant]
     Indication: PRODUCT USED FOR UNKNOWN INDICATION
  18. CALCIUM [Concomitant]
     Indication: PRODUCT USED FOR UNKNOWN INDICATION
  19. PREMPRO [Concomitant]
     Indication: MENOPAUSE

REACTIONS (1)
  - Macular degeneration [Not Recovered/Not Resolved]
